FAERS Safety Report 18026028 (Version 2)
Quarter: 2020Q3

REPORT INFORMATION
  Report Type: Spontaneous
  Country: SI (occurrence: SI)
  Receive Date: 20200715
  Receipt Date: 20200819
  Transmission Date: 20201103
  Serious: Yes (Hospitalization, Other)
  Sender: FDA-Public Use
  Company Number: SI-JNJFOC-20200721113

PATIENT
  Age: 86 Year
  Sex: Female
  Weight: 60 kg

DRUGS (7)
  1. RIVAROXABAN [Suspect]
     Active Substance: RIVAROXABAN
     Dosage: XARELTO 15 MG
     Route: 048
     Dates: start: 2018
  2. RIVAROXABAN [Suspect]
     Active Substance: RIVAROXABAN
     Dosage: 15 MG, UNK.?XARELTO 20 MG.
     Route: 048
     Dates: start: 2018
  3. RIVAROXABAN [Suspect]
     Active Substance: RIVAROXABAN
     Indication: ATRIAL FIBRILLATION
     Dosage: 20 MG, UNK.?XARELTO 20 MG.
     Route: 048
     Dates: start: 201412, end: 2018
  4. PERINDOPRIL [Concomitant]
     Active Substance: PERINDOPRIL
     Dosage: UNK
  5. DONEPEZIL. [Concomitant]
     Active Substance: DONEPEZIL
  6. INDAPAMIDE. [Concomitant]
     Active Substance: INDAPAMIDE
  7. BISOPROLOL [Concomitant]
     Active Substance: BISOPROLOL

REACTIONS (18)
  - Contusion [Unknown]
  - Facial bones fracture [Recovering/Resolving]
  - Epistaxis [Unknown]
  - Cognitive disorder [Not Recovered/Not Resolved]
  - Asthenia [Unknown]
  - Memory impairment [Not Recovered/Not Resolved]
  - Fall [Unknown]
  - Spontaneous haemorrhage [Recovered/Resolved]
  - Subcutaneous haematoma [Recovering/Resolving]
  - Periorbital haematoma [Recovering/Resolving]
  - Haematochezia [Recovered/Resolved]
  - Fall [Unknown]
  - Haematoma [Recovering/Resolving]
  - Urinary tract infection [Recovered/Resolved]
  - Immobile [Not Recovered/Not Resolved]
  - Paranasal sinus haematoma [Unknown]
  - Renal impairment [Unknown]
  - Treatment noncompliance [Unknown]

NARRATIVE: CASE EVENT DATE: 201501
